FAERS Safety Report 26185197 (Version 1)
Quarter: 2025Q4

REPORT INFORMATION
  Report Type: Spontaneous
  Country: US (occurrence: US)
  Receive Date: 20251222
  Receipt Date: 20251222
  Transmission Date: 20260119
  Serious: No
  Sender: GLAXOSMITHKLINE
  Company Number: US-GSK-US2025GSK161968

PATIENT
  Sex: Female

DRUGS (5)
  1. WELLBUTRIN [Suspect]
     Active Substance: BUPROPION HYDROCHLORIDE
     Indication: Product used for unknown indication
     Dosage: UNK
  2. BRIXADI [Suspect]
     Active Substance: BUPRENORPHINE
     Indication: Product used for unknown indication
     Dosage: UNK UNK, WE, 1 PER 1 WEEK, INJECTION
     Route: 065
  3. BRIXADI [Suspect]
     Active Substance: BUPRENORPHINE
     Dosage: 1 PER 1 MONTH
     Route: 065
  4. BRIXADI [Suspect]
     Active Substance: BUPRENORPHINE
     Dosage: 1 PER 1 WEEK
     Route: 065
  5. TOPIRAMATE [Suspect]
     Active Substance: TOPIRAMATE
     Indication: Product used for unknown indication
     Dosage: UNK

REACTIONS (1)
  - Pruritus [Unknown]
